FAERS Safety Report 5361910-4 (Version None)
Quarter: 2007Q2

REPORT INFORMATION
  Report Type: 
  Country: None (occurrence: None)
  Receive Date: 20070619
  Receipt Date: 20070606
  Transmission Date: 20071010
  Serious: Yes (Life-Threatening, Other)
  Sender: FDA-Public Use
  Company Number: CA-KINGPHARMUSA00001-K200700707

PATIENT

DRUGS (2)
  1. EPIPEN [Suspect]
     Indication: ANAPHYLACTIC REACTION
     Dosage: .3 MG, SINGLE
     Route: 023
     Dates: start: 20070101, end: 20070101
  2. ASTHMA MEDICATIONS [Concomitant]

REACTIONS (3)
  - ACCIDENTAL EXPOSURE [None]
  - CARDIAC ARREST [None]
  - SKELETAL INJURY [None]
